FAERS Safety Report 8394541-2 (Version None)
Quarter: 2012Q2

REPORT INFORMATION
  Report Type: 
  Country: None (occurrence: None)
  Receive Date: 20120530
  Receipt Date: 20120528
  Transmission Date: 20120825
  Serious: Yes (Death)
  Sender: FDA-Public Use
  Company Number: PHHY2010CA41542

PATIENT
  Sex: Male

DRUGS (3)
  1. LANTUS [Concomitant]
     Dosage: 100 MG, QAM
  2. SANDOSTATIN LAR [Suspect]
     Indication: NEUROENDOCRINE TUMOUR
     Dosage: 30 MG, QMO
     Route: 030
     Dates: start: 20100402
  3. APIDRA [Concomitant]

REACTIONS (2)
  - BLOOD GLUCOSE INCREASED [None]
  - NEOPLASM MALIGNANT [None]
